FAERS Safety Report 6824944-6 (Version None)
Quarter: 2010Q3

REPORT INFORMATION
  Report Type: 
  Country: None (occurrence: None)
  Receive Date: 20100708
  Receipt Date: 20061204
  Transmission Date: 20110219
  Serious: No
  Sender: FDA-Public Use
  Company Number: US-PFIZER INC-2006152422

PATIENT
  Sex: Female
  Weight: 74.84 kg

DRUGS (5)
  1. CHANTIX [Suspect]
     Indication: SMOKING CESSATION THERAPY
     Dates: start: 20061125
  2. NEXIUM [Concomitant]
  3. LOTREL [Concomitant]
     Indication: BLOOD PRESSURE
  4. TYLENOL [Concomitant]
  5. ADVIL LIQUI-GELS [Concomitant]

REACTIONS (3)
  - ABDOMINAL DISCOMFORT [None]
  - CONSTIPATION [None]
  - NAUSEA [None]
